FAERS Safety Report 10464400 (Version 1)
Quarter: 2014Q3

REPORT INFORMATION
  Report Type: Spontaneous
  Country: US (occurrence: US)
  Receive Date: 20140919
  Receipt Date: 20140919
  Transmission Date: 20150326
  Serious: Yes (Other)
  Sender: FDA-Public Use
  Company Number: US-PFIZER INC-2014258027

PATIENT
  Age: 77 Year
  Sex: Female
  Weight: 63 kg

DRUGS (2)
  1. PREMPRO [Suspect]
     Active Substance: ESTROGENS, CONJUGATED\MEDROXYPROGESTERONE ACETATE
     Indication: ARTHRITIS
     Dosage: 0.3MG/1.5MG, 1X/DAY
     Route: 048
     Dates: start: 1987
  2. PREMPRO [Suspect]
     Active Substance: ESTROGENS, CONJUGATED\MEDROXYPROGESTERONE ACETATE
     Indication: OSTEOPOROSIS

REACTIONS (1)
  - Glaucoma [Unknown]
